FAERS Safety Report 6012347-6 (Version None)
Quarter: 2008Q4

REPORT INFORMATION
  Report Type: 
  Country: None (occurrence: None)
  Receive Date: 20081218
  Receipt Date: 20080827
  Transmission Date: 20090506
  Serious: No
  Sender: FDA-Public Use
  Company Number: US-ASTRAZENECA-2008UW17722

PATIENT
  Age: 38 Year
  Sex: Female

DRUGS (2)
  1. SYMBICORT [Suspect]
     Dosage: 160/4.5
     Route: 055
  2. SYMBICORT [Suspect]
     Dosage: 80/4.5
     Route: 055

REACTIONS (1)
  - OEDEMA PERIPHERAL [None]
